FAERS Safety Report 25271362 (Version 1)
Quarter: 2025Q2

REPORT INFORMATION
  Report Type: Spontaneous
  Country: CA (occurrence: CA)
  Receive Date: 20250506
  Receipt Date: 20250506
  Transmission Date: 20250717
  Serious: Yes (Other)
  Sender: GALDERMA
  Company Number: CA-GALDERMA-CA2025006694

PATIENT

DRUGS (14)
  1. DOXYCYCLINE [Suspect]
     Active Substance: DOXYCYCLINE
     Indication: Product used for unknown indication
     Route: 065
  2. ADVIL [Concomitant]
     Active Substance: IBUPROFEN
     Indication: Product used for unknown indication
     Route: 065
  3. BILASTINE [Concomitant]
     Active Substance: BILASTINE
     Indication: Product used for unknown indication
     Route: 048
  4. CODEINE [Concomitant]
     Active Substance: CODEINE
     Indication: Product used for unknown indication
     Route: 065
  5. HYDROMORPHONE [Concomitant]
     Active Substance: HYDROMORPHONE
     Indication: Product used for unknown indication
     Route: 065
  6. PREDNISONE [Concomitant]
     Active Substance: PREDNISONE
     Indication: Product used for unknown indication
     Route: 048
  7. OMALIZUMAB [Concomitant]
     Active Substance: OMALIZUMAB
     Indication: Chronic spontaneous urticaria
     Route: 058
  8. OMALIZUMAB [Concomitant]
     Active Substance: OMALIZUMAB
     Route: 058
  9. OMALIZUMAB [Concomitant]
     Active Substance: OMALIZUMAB
     Route: 058
  10. OMALIZUMAB [Concomitant]
     Active Substance: OMALIZUMAB
     Route: 058
  11. OMALIZUMAB [Concomitant]
     Active Substance: OMALIZUMAB
     Route: 058
  12. OMALIZUMAB [Concomitant]
     Active Substance: OMALIZUMAB
     Route: 058
  13. OMALIZUMAB [Concomitant]
     Active Substance: OMALIZUMAB
     Route: 058
  14. OMALIZUMAB [Concomitant]
     Active Substance: OMALIZUMAB
     Route: 058

REACTIONS (15)
  - Angioedema [Unknown]
  - Arthralgia [Unknown]
  - Benign ovarian tumour [Unknown]
  - Blood pressure increased [Unknown]
  - Bone pain [Unknown]
  - Drug hypersensitivity [Unknown]
  - Headache [Unknown]
  - Joint swelling [Unknown]
  - Pain [Unknown]
  - Periorbital swelling [Unknown]
  - Rash [Unknown]
  - Respiratory tract congestion [Unknown]
  - Urticaria [Unknown]
  - Inappropriate schedule of product administration [Recovered/Resolved]
  - Product dose omission issue [Recovered/Resolved]
